FAERS Safety Report 7899962-X (Version None)
Quarter: 2011Q4

REPORT INFORMATION
  Report Type: 
  Country: None (occurrence: None)
  Receive Date: 20111107
  Receipt Date: 20111013
  Transmission Date: 20120403
  Serious: No
  Sender: FDA-Public Use
  Company Number: US-AMGEN-USASP2011013409

PATIENT
  Age: 65 Year
  Sex: Female

DRUGS (2)
  1. ENBREL [Suspect]
     Indication: PSORIATIC ARTHROPATHY
     Dosage: 50 MG, QWK
     Dates: start: 20101103, end: 20110302
  2. ENBREL [Suspect]
     Indication: PSORIASIS

REACTIONS (3)
  - IMMUNE SYSTEM DISORDER [None]
  - PSORIATIC ARTHROPATHY [None]
  - TENDON DISORDER [None]
